FAERS Safety Report 4983770-3 (Version None)
Quarter: 2006Q1

REPORT INFORMATION
  Report Type: 
  Country: None (occurrence: None)
  Receive Date: 20060302
  Receipt Date: 20050916
  Transmission Date: 20060701
  Serious: Yes (Other)
  Sender: FDA-Public Use
  Company Number: 217690

PATIENT
  Age: 16 Year
  Sex: Male
  Weight: 89.8 kg

DRUGS (1)
  1. NUTROPIN [Suspect]
     Indication: GROWTH HORMONE DEFICIENCY
     Dosage: 8.9 MG, QD, SUBCUTANEOUS
     Route: 058
     Dates: start: 20020613

REACTIONS (1)
  - INTRACRANIAL PRESSURE INCREASED [None]
